FAERS Safety Report 11899343 (Version 1)
Quarter: 2016Q1

REPORT INFORMATION
  Report Type: Spontaneous
  Country: US (occurrence: US)
  Receive Date: 20160108
  Receipt Date: 20160108
  Transmission Date: 20160526
  Serious: No
  Sender: FDA-Public Use
  Company Number: US-SA-2015SA186603

PATIENT

DRUGS (2)
  1. AFREZZA [Suspect]
     Active Substance: INSULIN HUMAN
     Indication: DIABETES MELLITUS
     Dosage: UP TO 16 UNITS (IT WAS NOT KNOWN IF TOTAL DAILY DOSE OR IF IT WAS GIVEN THREE TIMES DAILY)
     Route: 065
  2. INSULIN [Concomitant]
     Active Substance: INSULIN NOS
     Dosage: DOSE:6 UNIT(S)

REACTIONS (1)
  - Drug ineffective [Unknown]
